FAERS Safety Report 6158125-9 (Version None)
Quarter: 2009Q2

REPORT INFORMATION
  Report Type: 
  Country: None (occurrence: None)
  Receive Date: 20090417
  Receipt Date: 20090408
  Transmission Date: 20091009
  Serious: Yes (Other)
  Sender: FDA-Public Use
  Company Number: JP-AMGEN-US342538

PATIENT
  Sex: Female
  Weight: 40 kg

DRUGS (9)
  1. ENBREL [Suspect]
     Indication: RHEUMATOID ARTHRITIS
     Dosage: UNSPECIFIED DOSE FORM 25 MG TWICE WEEKLY
     Route: 058
     Dates: start: 20071025, end: 20090406
  2. PREDNISOLONE [Concomitant]
     Indication: RHEUMATOID ARTHRITIS
     Route: 048
     Dates: start: 20081007, end: 20081201
  3. TAKEPRON [Concomitant]
  4. MARZULENE [Concomitant]
  5. ISCOTIN [Concomitant]
  6. HYPEN [Concomitant]
     Indication: RHEUMATOID ARTHRITIS
  7. GASMOTIN [Concomitant]
  8. METHOTREXATE [Concomitant]
     Indication: RHEUMATOID ARTHRITIS
     Route: 048
     Dates: start: 20080707
  9. FOLIAMIN [Concomitant]

REACTIONS (1)
  - SYSTEMIC LUPUS ERYTHEMATOSUS [None]
